FAERS Safety Report 17816057 (Version 1)
Quarter: 2020Q2

REPORT INFORMATION
  Report Type: Spontaneous
  Country: MY (occurrence: MY)
  Receive Date: 20200522
  Receipt Date: 20200522
  Transmission Date: 20200714
  Serious: Yes (Life-Threatening, Hospitalization, Other)
  Sender: FDA-Public Use
  Company Number: MY-ACCORD-182851

PATIENT
  Age: 37 Year
  Sex: Female

DRUGS (1)
  1. AMLODIPINE [Suspect]
     Active Substance: AMLODIPINE BESYLATE
     Route: 048

REACTIONS (8)
  - Vomiting [Recovering/Resolving]
  - Non-cardiogenic pulmonary oedema [Recovering/Resolving]
  - Abdominal pain [Recovering/Resolving]
  - Dizziness [Recovering/Resolving]
  - Hypotension [Recovered/Resolved]
  - Acute kidney injury [Recovering/Resolving]
  - Hyperlactacidaemia [Recovered/Resolved]
  - Intentional overdose [Unknown]
